FAERS Safety Report 7281623-1 (Version None)
Quarter: 2011Q1

REPORT INFORMATION
  Report Type: 
  Country: None (occurrence: None)
  Receive Date: 20110208
  Receipt Date: 20110204
  Transmission Date: 20110831
  Serious: Yes (Death, Hospitalization)
  Sender: FDA-Public Use
  Company Number: PHHY2011JP06939

PATIENT
  Age: 89 Year
  Sex: Male

DRUGS (21)
  1. SOL-MELCORT [Concomitant]
     Dosage: 125 MG
     Route: 042
     Dates: end: 20110111
  2. SIGMART [Concomitant]
     Dosage: 20 MG
     Route: 048
     Dates: start: 20101228
  3. HERBESSER [Concomitant]
     Dosage: 400 MG
     Dates: start: 20101228
  4. ASPIRIN [Concomitant]
     Dosage: 100 MG
     Route: 048
     Dates: start: 20101228
  5. TAKEPRON [Concomitant]
     Dosage: 30 MG
     Route: 048
     Dates: start: 20110109
  6. SOL-MELCORT [Concomitant]
     Dosage: 500 MG
     Route: 042
  7. SOL-MELCORT [Concomitant]
     Dosage: 250 MG
     Route: 042
  8. DALTEPARIN SODIUM [Concomitant]
     Dosage: 3000 DF
     Route: 042
     Dates: start: 20101228, end: 20110106
  9. LASIX [Concomitant]
     Dosage: 20 MG
     Dates: start: 20110128
  10. PARIET [Concomitant]
     Dosage: 10 MG
     Route: 048
     Dates: start: 20101228, end: 20110108
  11. SOL-MELCORT [Concomitant]
     Dosage: 250 MG
     Route: 042
     Dates: end: 20110111
  12. NEORAL [Suspect]
     Indication: INTERSTITIAL LUNG DISEASE
     Dosage: 100 MG
     Route: 048
     Dates: start: 20101230
  13. PREDONINE [Concomitant]
     Dosage: 80 MG
     Route: 042
     Dates: start: 20110112
  14. MAGLAX [Concomitant]
     Dosage: 1320 MG
     Dates: start: 20101228, end: 20110108
  15. SOL-MELCORT [Concomitant]
     Dosage: 1000 MG
     Route: 042
     Dates: end: 20110111
  16. PREDONINE [Concomitant]
     Dosage: 50 MG
     Route: 042
     Dates: end: 20110128
  17. CIPROFLOXACIN HCL [Concomitant]
     Dosage: 200 MG
     Route: 042
     Dates: start: 20101228, end: 20110109
  18. NEORAL [Suspect]
     Dosage: 50 MG
     Route: 048
     Dates: start: 20110111, end: 20110130
  19. PREDONINE [Concomitant]
     Dosage: 60 MG
     Route: 042
  20. BAKTAR [Concomitant]
     Dosage: 1 G
     Route: 048
     Dates: start: 20110105, end: 20110117
  21. SOL-MELCORT [Concomitant]
     Dosage: 1000 MG
     Route: 042
     Dates: start: 20101230, end: 20110111

REACTIONS (2)
  - WHITE BLOOD CELL COUNT DECREASED [None]
  - INTERSTITIAL LUNG DISEASE [None]
